APPROVED DRUG PRODUCT: OXYCODONE HYDROCHLORIDE
Active Ingredient: OXYCODONE HYDROCHLORIDE
Strength: 20MG
Dosage Form/Route: TABLET;ORAL
Application: A091313 | Product #005
Applicant: DR REDDYS LABORATORIES SA
Approved: Apr 29, 2016 | RLD: No | RS: No | Type: DISCN